FAERS Safety Report 9591735 (Version 2)
Quarter: 2013Q4

REPORT INFORMATION
  Report Type: Spontaneous
  Country: US (occurrence: US)
  Receive Date: 20131004
  Receipt Date: 20131004
  Transmission Date: 20140711
  Serious: No
  Sender: FDA-Public Use
  Company Number: US-AMGEN-USASP2012076518

PATIENT
  Age: 62 Year
  Sex: Female
  Weight: 84.81 kg

DRUGS (2)
  1. ENBREL [Suspect]
     Indication: RHEUMATOID ARTHRITIS
     Dosage: 50 MG, QWK
     Route: 058
     Dates: start: 20121017
  2. METHOTREXATE [Concomitant]
     Indication: RHEUMATOID ARTHRITIS
     Dosage: 0.8 G, QWK
     Route: 058

REACTIONS (2)
  - Hot flush [Not Recovered/Not Resolved]
  - Injection site pain [Not Recovered/Not Resolved]
